FAERS Safety Report 5061629-3 (Version None)
Quarter: 2006Q3

REPORT INFORMATION
  Report Type: 
  Country: None (occurrence: None)
  Receive Date: 20060721
  Receipt Date: 20060711
  Transmission Date: 20061208
  Serious: Yes (Other)
  Sender: FDA-Public Use
  Company Number: 2006085850

PATIENT
  Age: 63 Year
  Sex: Female
  Weight: 56.246 kg

DRUGS (3)
  1. AZITHROMYCIN [Suspect]
     Indication: BRONCHITIS
     Dosage: 500 MG (500 MG, FREQUENCY:  QD), ORAL
     Route: 048
     Dates: start: 20060707, end: 20060708
  2. FEMARA [Concomitant]
  3. LIPITOR [Concomitant]

REACTIONS (3)
  - ABDOMINAL PAIN [None]
  - DIARRHOEA [None]
  - MALAISE [None]
